FAERS Safety Report 12085016 (Version 1)
Quarter: 2016Q1

REPORT INFORMATION
  Report Type: Spontaneous
  Country: US (occurrence: US)
  Receive Date: 20160217
  Receipt Date: 20160217
  Transmission Date: 20160526
  Serious: No
  Sender: FDA-Public Use
  Company Number: US-PERRIGO-15US013698

PATIENT
  Age: 63 Year
  Sex: Female

DRUGS (2)
  1. TRETINOIN. [Suspect]
     Active Substance: TRETINOIN
     Dosage: UNKNOWN AMOUNT, NIGHTLY
     Route: 061
     Dates: start: 2015
  2. TRETINOIN. [Suspect]
     Active Substance: TRETINOIN
     Indication: SKIN WRINKLING
     Dosage: UNKNOWN AMOUNT, EVERY OTHER NIGHT
     Route: 061
     Dates: start: 20150427, end: 2015

REACTIONS (3)
  - Drug ineffective for unapproved indication [Unknown]
  - Product physical consistency issue [Unknown]
  - Product formulation issue [Unknown]

NARRATIVE: CASE EVENT DATE: 20150427
